FAERS Safety Report 24035086 (Version 1)
Quarter: 2024Q3

REPORT INFORMATION
  Report Type: Report from Study
  Country: DE (occurrence: DE)
  Receive Date: 20240701
  Receipt Date: 20240701
  Transmission Date: 20241017
  Serious: No
  Sender: ROCHE
  Company Number: DE-ROCHE-3176403

PATIENT
  Age: 47 Year
  Sex: Female
  Weight: 30.0 kg

DRUGS (2)
  1. EVRYSDI [Suspect]
     Active Substance: RISDIPLAM
     Indication: Spinal muscular atrophy
     Dosage: MOST RECENT DOSE ON 06/JUL/2022, 08/FEB2023
     Route: 048
     Dates: start: 20210607
  2. OMEPRAZOLE [Concomitant]
     Active Substance: OMEPRAZOLE
     Indication: Product used for unknown indication
     Route: 048
     Dates: start: 20010101

REACTIONS (11)
  - Constipation [Recovered/Resolved]
  - Pigmentation disorder [Not Recovered/Not Resolved]
  - Headache [Not Recovered/Not Resolved]
  - Diarrhoea [Recovered/Resolved]
  - Back pain [Not Recovered/Not Resolved]
  - Polyuria [Not Recovered/Not Resolved]
  - Respiratory tract infection [Recovered/Resolved]
  - Oesophagitis [Not Recovered/Not Resolved]
  - Otitis media acute [Recovered/Resolved]
  - SARS-CoV-2 test positive [Recovered/Resolved]
  - Skin irritation [Not Recovered/Not Resolved]

NARRATIVE: CASE EVENT DATE: 20220201
